FAERS Safety Report 9386251 (Version 1)
Quarter: 2013Q3

REPORT INFORMATION
  Report Type: Spontaneous
  Country: US (occurrence: US)
  Receive Date: 20130708
  Receipt Date: 20130708
  Transmission Date: 20140515
  Serious: Yes (Other)
  Sender: FDA-Public Use
  Company Number: US-AMGEN-USASP2013046931

PATIENT
  Age: 49 Year
  Sex: Female

DRUGS (1)
  1. ENBREL [Suspect]
     Indication: RHEUMATOID ARTHRITIS
     Dosage: 50 MG, QWK
     Route: 065
     Dates: start: 20130413

REACTIONS (8)
  - Systemic lupus erythematosus rash [Recovered/Resolved]
  - Asthma [Recovered/Resolved]
  - Sinus congestion [Recovered/Resolved]
  - Respiratory tract congestion [Recovered/Resolved]
  - Rash [Not Recovered/Not Resolved]
  - Injection site erythema [Unknown]
  - Injection site pruritus [Unknown]
  - Injection site rash [Unknown]
